FAERS Safety Report 8770533 (Version 2)
Quarter: 2012Q4

REPORT INFORMATION
  Report Type: 
  Country: JO (occurrence: JO)
  Receive Date: 20120906
  Receipt Date: 20121012
  Transmission Date: 20130627
  Serious: Yes (Other)
  Sender: FDA-Public Use
  Company Number: PHHY2012JO077258

PATIENT
  Age: 32 Year
  Sex: Female

DRUGS (1)
  1. TASIGNA [Suspect]
     Indication: CHRONIC MYELOID LEUKAEMIA
     Dosage: 300 mg, BID
     Route: 048
     Dates: start: 201203

REACTIONS (1)
  - Electrocardiogram QT prolonged [Recovering/Resolving]
